FAERS Safety Report 8763168 (Version 1)
Quarter: 2012Q4

REPORT INFORMATION
  Report Type: 
  Country: US (occurrence: US)
  Receive Date: 20120831
  Receipt Date: 20120831
  Transmission Date: 20130627
  Serious: Yes (Hospitalization)
  Sender: FDA-Public Use
  Company Number: US-BAYER-2012-089717

PATIENT
  Age: 21 Year
  Sex: Female

DRUGS (7)
  1. YASMIN [Suspect]
  2. HYDROCODONE W/ACETAMINOPHEN [Concomitant]
     Indication: PAIN
     Dosage: 5/325 mg 1 to 2 pills oral every 6 to 8 hours
     Route: 048
  3. COLACE [Concomitant]
     Indication: CONSTIPATION
     Dosage: 100 mg, PRN
     Route: 048
  4. IBUPROFEN [Concomitant]
     Indication: PAIN
     Dosage: 400 mg,8 hours as neeeded
     Route: 048
  5. ALBUTEROL [Concomitant]
     Dosage: 2 puffs 15-20 minutes before exercise
  6. ZOLOFT [Concomitant]
     Dosage: 150 mg,po daily
     Route: 048
  7. IMITREX [Concomitant]
     Indication: HEADACHE
     Dosage: UNK UNK, PRN

REACTIONS (1)
  - Pulmonary embolism [None]
